FAERS Safety Report 8967862 (Version 1)
Quarter: 2012Q4

REPORT INFORMATION
  Report Type: Spontaneous
  Country: GB (occurrence: None)
  Receive Date: 20121207
  Receipt Date: 20121207
  Transmission Date: 20130627
  Serious: Yes (Other)
  Sender: FDA-Public Use
  Company Number: GER/UKI/12/0026920

PATIENT
  Age: 74 Year
  Sex: Female
  Weight: 76 kg

DRUGS (14)
  1. PANTOPRAZOLE (PANTOPRAZOLE) [Suspect]
     Indication: GASTROESOPHAGEAL REFLUX
     Route: 048
     Dates: start: 1999
  2. ALENDRONIC ACID (ALENDRONIC ACID) [Concomitant]
  3. AMITRIPTYLINE (AMITRIPTYLINE) [Concomitant]
  4. CALFOVIT D3 (CALCIDO) [Concomitant]
  5. CELLUVISC (CARMELLOSE SODIUM) [Concomitant]
  6. CHLORAMPHENICOL (CHLORAMPHENICOL) [Concomitant]
  7. CODEINE (CODEINE) [Concomitant]
  8. FLUTICASONE (FLUTICASONE) [Concomitant]
  9. GLANDOSANE (GLANDOSANE) [Concomitant]
  10. LACRI-LUBE (LACRI-LUBE) [Concomitant]
  11. LOSARTAN (LOSARTAN) [Concomitant]
  12. MOTILIUM (DOMPERIDONE) [Concomitant]
  13. PARACETAMOL (PARACETAMOL) [Concomitant]
  14. REPLENS (REPLENS) [Concomitant]

REACTIONS (3)
  - Anaemia folate deficiency [None]
  - Iron deficiency anaemia [None]
  - Pernicious anaemia [None]
